FAERS Safety Report 25761103 (Version 1)
Quarter: 2025Q3

REPORT INFORMATION
  Report Type: Spontaneous
  Country: EU (occurrence: EU)
  Receive Date: 20250904
  Receipt Date: 20250904
  Transmission Date: 20251021
  Serious: Yes (Hospitalization)
  Sender: MERCK SHARP & DOHME LLC
  Company Number: None

PATIENT
  Age: 88 Year
  Sex: Male
  Weight: 78.3 kg

DRUGS (16)
  1. ERTAPENEM [Suspect]
     Active Substance: ERTAPENEM
     Indication: Prostatitis
     Route: 058
     Dates: start: 20250630, end: 20250709
  2. ACETAMINOPHEN [Concomitant]
     Active Substance: ACETAMINOPHEN
  3. FUROSEMIDE [Concomitant]
     Active Substance: FUROSEMIDE
  4. APIXABAN [Concomitant]
     Active Substance: APIXABAN
  5. EMPAGLIFLOZIN [Concomitant]
     Active Substance: EMPAGLIFLOZIN
  6. FOLIC ACID [Concomitant]
     Active Substance: FOLIC ACID
  7. AMLODIPINE [Concomitant]
     Active Substance: AMLODIPINE BESYLATE
  8. IRBESARTAN [Concomitant]
     Active Substance: IRBESARTAN
  9. ALLOPURINOL [Concomitant]
     Active Substance: ALLOPURINOL
  10. MORPHINE SULFATE [Concomitant]
     Active Substance: MORPHINE SULFATE
  11. TAMSULOSIN HYDROCHLORIDE [Concomitant]
     Active Substance: TAMSULOSIN HYDROCHLORIDE
  12. ARANESP [Concomitant]
     Active Substance: DARBEPOETIN ALFA
  13. 1,3,5-TRIMETHOXYBENZENE [Concomitant]
     Active Substance: 1,3,5-TRIMETHOXYBENZENE
  14. SERTRALINE HYDROCHLORIDE [Concomitant]
     Active Substance: SERTRALINE HYDROCHLORIDE
  15. METOPIMAZINE [Concomitant]
     Active Substance: METOPIMAZINE
  16. AMIODARONE [Concomitant]
     Active Substance: AMIODARONE

REACTIONS (2)
  - Confusional state [Recovered/Resolved]
  - Hallucination, visual [Recovered/Resolved]

NARRATIVE: CASE EVENT DATE: 20250708
